FAERS Safety Report 9695402 (Version 2)
Quarter: 2013Q4

REPORT INFORMATION
  Report Type: Spontaneous
  Country: JP (occurrence: JP)
  Receive Date: 20131119
  Receipt Date: 20131119
  Transmission Date: 20140711
  Serious: Yes (Other)
  Sender: FDA-Public Use
  Company Number: JP-PFIZER INC-2013283864

PATIENT
  Age: 30 Year
  Sex: Female
  Weight: 78 kg

DRUGS (31)
  1. LYRICA [Suspect]
     Indication: FIBROMYALGIA
     Dosage: 150 MG/DAY
     Route: 048
     Dates: start: 201103
  2. LYRICA [Suspect]
     Indication: PAIN
     Dosage: 300 MG/DAY
     Route: 048
  3. LYRICA [Suspect]
     Dosage: 150 MG/DAY
     Route: 048
  4. LYRICA [Suspect]
     Dosage: 75 MG/DAY
     Route: 048
     Dates: end: 201106
  5. PREDNISOLONE [Suspect]
     Dosage: 5 MG/DAY
     Route: 048
  6. GASTER [Suspect]
     Dosage: 40 MG/DAY
     Route: 048
  7. ALLEGRA [Suspect]
     Dosage: 120 MG/DAY
     Route: 048
  8. NEUROTROPIN [Suspect]
     Dosage: 24 IU/DAY
     Route: 048
  9. MAXALT [Suspect]
     Dosage: 10 MG, 1X/DAY
     Route: 048
  10. RIVOTRIL [Suspect]
     Dosage: 0.5 MG, 1X/DAY
     Route: 048
  11. DEPAKENE [Suspect]
     Dosage: 300 MG/DAY
     Route: 048
  12. CYMBALTA [Suspect]
     Dosage: 40 MG/DAY
     Route: 048
  13. BOUFUUTSUUSHOUSAN [Suspect]
     Dosage: 2.5 G, 3X/DAY
     Route: 048
  14. MIRTAZAPINE [Concomitant]
     Indication: INSOMNIA
  15. BAYASPIRIN [Concomitant]
     Dosage: 100 MG/DAY
     Route: 048
  16. PROMAC /JPN/ [Concomitant]
     Dosage: 150 MG/DAY
     Route: 048
  17. SELBEX [Concomitant]
     Dosage: 150 MG/DAY
     Route: 048
  18. BIO THREE [Concomitant]
     Dosage: 1 DF, 3X/DAY
     Route: 048
  19. MAG-LAX [Concomitant]
     Dosage: 750 MG/DAY
     Route: 048
  20. PURSENNID [Concomitant]
     Dosage: 24 MG/DAY
     Route: 048
  21. HIBON [Concomitant]
     Dosage: 60 MG/DAY
     Route: 048
  22. PYDOXAL [Concomitant]
     Dosage: 60 MG/DAY
  23. METHYCOBAL [Concomitant]
     Dosage: 1500 UG/DAY
     Route: 048
  24. TRANSAMIN [Concomitant]
     Dosage: 750 MG/DAY
     Route: 048
  25. MYONAL [Concomitant]
     Dosage: 150 MG/DAY
     Route: 048
  26. ADETPHOS [Concomitant]
     Dosage: 360 MG/DAY
     Route: 048
  27. DIFFERIN [Concomitant]
     Dosage: 0.1 %/DAY
     Route: 061
  28. ACUATIM [Concomitant]
     Dosage: 1 %/DAY
     Route: 061
  29. ANTEBATE [Concomitant]
     Route: 061
  30. LOXONIN [Concomitant]
     Route: 061
  31. SHAKUYAKU-KANZO-TO [Concomitant]
     Dosage: 2.5 G, 3X/DAY
     Route: 048

REACTIONS (7)
  - Delirium [Recovered/Resolved]
  - Disturbance in attention [Recovered/Resolved]
  - Hyperphagia [Recovered/Resolved]
  - Memory impairment [Recovered/Resolved]
  - Herpes zoster [Recovered/Resolved]
  - Pain [Recovering/Resolving]
  - Insomnia [Recovering/Resolving]
